FAERS Safety Report 5833538-0 (Version None)
Quarter: 2008Q3

REPORT INFORMATION
  Report Type: 
  Country: None (occurrence: None)
  Receive Date: 20080804
  Receipt Date: 20080804
  Transmission Date: 20090109
  Serious: Yes (Other)
  Sender: FDA-Public Use
  Company Number: None

PATIENT
  Sex: Female
  Weight: 55.7924 kg

DRUGS (1)
  1. JOLESSA 0.15 MG LEVONORGESTREL/0. BARR [Suspect]
     Indication: CONTRACEPTION
     Dosage: 1 TABLET DAILY PO
     Route: 048
     Dates: start: 20080629, end: 20080802

REACTIONS (4)
  - DRUG DOSE OMISSION [None]
  - METRORRHAGIA [None]
  - MUSCLE SPASMS [None]
  - THROMBOSIS [None]
